FAERS Safety Report 8161424-2 (Version None)
Quarter: 2012Q1

REPORT INFORMATION
  Report Type: 
  Country: None (occurrence: None)
  Receive Date: 20120222
  Receipt Date: 20120222
  Transmission Date: 20120608
  Serious: No
  Sender: FDA-Public Use
  Company Number: None

PATIENT
  Age: 68 Year
  Sex: Male
  Weight: 81.2 kg

DRUGS (1)
  1. ZYTIGA [Suspect]
     Dosage: 1000MG DAILY PO
     Route: 048
     Dates: start: 20111025

REACTIONS (3)
  - HEADACHE [None]
  - GINGIVAL SWELLING [None]
  - ANGIOPATHY [None]
